FAERS Safety Report 12602218 (Version 1)
Quarter: 2016Q3

REPORT INFORMATION
  Report Type: Spontaneous
  Country: CA (occurrence: None)
  Receive Date: 20160727
  Receipt Date: 20160727
  Transmission Date: 20161109
  Serious: Yes (Hospitalization)
  Sender: FDA-Public Use
  Company Number: None

PATIENT
  Age: 68 Year
  Sex: Female
  Weight: 55 kg

DRUGS (12)
  1. MEMANTINE HYDROCHLORIDE. [Suspect]
     Active Substance: MEMANTINE HYDROCHLORIDE
     Dates: end: 20160701
  2. METFORMINE [Concomitant]
     Active Substance: METFORMIN HYDROCHLORIDE
  3. ONGLYZA [Concomitant]
     Active Substance: SAXAGLIPTIN HYDROCHLORIDE
  4. ASA [Concomitant]
     Active Substance: ASPIRIN
  5. CORTEF [Concomitant]
     Active Substance: HYDROCORTISONE
  6. COVERSYL [Concomitant]
     Active Substance: PERINDOPRIL
  7. GLICLAZIDE [Concomitant]
     Active Substance: GLICLAZIDE
  8. AMLODIPINE [Concomitant]
     Active Substance: AMLODIPINE BESYLATE
  9. FOLIC-ACID [Concomitant]
  10. PANTOPRAZOLE [Concomitant]
     Active Substance: PANTOPRAZOLE SODIUM
  11. ROSUVASTATIN. [Concomitant]
     Active Substance: ROSUVASTATIN
  12. VITAMINE D [Concomitant]

REACTIONS (5)
  - Muscular weakness [None]
  - Aphasia [None]
  - Memory impairment [None]
  - Cerebral venous thrombosis [None]
  - Hypoaesthesia [None]

NARRATIVE: CASE EVENT DATE: 20160702
